FAERS Safety Report 6828080-4 (Version None)
Quarter: 2010Q3

REPORT INFORMATION
  Report Type: 
  Country: None (occurrence: None)
  Receive Date: 20100708
  Receipt Date: 20100708
  Transmission Date: 20110219
  Serious: No
  Sender: FDA-Public Use
  Company Number: None

PATIENT
  Sex: Female
  Weight: 61.2356 kg

DRUGS (1)
  1. CLOBETASOL PROPIONATE [Suspect]
     Indication: ALOPECIA
     Dosage: 1.5 CAPFULS 2X/DAY TOP
     Route: 061
     Dates: start: 20091113, end: 20100704

REACTIONS (1)
  - RASH ERYTHEMATOUS [None]
